FAERS Safety Report 8909168 (Version 1)
Quarter: 2012Q4

REPORT INFORMATION
  Report Type: Spontaneous
  Country: KR (occurrence: None)
  Receive Date: 20121107
  Receipt Date: 20121107
  Transmission Date: 20130627
  Serious: Yes (Other)
  Sender: FDA-Public Use
  Company Number: DSA_60705_2012

PATIENT
  Age: 43 Year
  Sex: Female

DRUGS (1)
  1. FLUOROURACIL (FLUOROURACIL) [Suspect]
     Indication: CERVIX CARCINOMA

REACTIONS (1)
  - Leukoencephalopathy [None]
